FAERS Safety Report 6454008-5 (Version None)
Quarter: 2009Q4

REPORT INFORMATION
  Report Type: 
  Country: None (occurrence: None)
  Receive Date: 20091124
  Receipt Date: 20091117
  Transmission Date: 20100525
  Serious: Yes (Hospitalization)
  Sender: FDA-Public Use
  Company Number: A0762217A

PATIENT
  Age: 71 Year
  Sex: Male
  Weight: 84.5 kg

DRUGS (4)
  1. AVANDIA [Suspect]
     Indication: DIABETES MELLITUS
     Dosage: 4MG PER DAY
     Route: 048
     Dates: start: 20060601, end: 20061219
  2. GLUCOTROL [Concomitant]
  3. LISINOPRIL [Concomitant]
  4. ZESTRIL [Concomitant]

REACTIONS (6)
  - CARDIAC FAILURE CONGESTIVE [None]
  - CORONARY ARTERY DISEASE [None]
  - HEART INJURY [None]
  - MYOCARDIAL INFARCTION [None]
  - RENAL FAILURE [None]
  - VISUAL IMPAIRMENT [None]
